FAERS Safety Report 23113400 (Version 2)
Quarter: 2023Q4

REPORT INFORMATION
  Report Type: Report from Study
  Country: US (occurrence: US)
  Receive Date: 20231027
  Receipt Date: 20231120
  Transmission Date: 20240110
  Serious: Yes (Other)
  Sender: FDA-Public Use
  Company Number: US-ACADIA PHARMACEUTICALS INC.-ACA-2023-PIM-004469

PATIENT
  Age: 70 Year
  Sex: Male

DRUGS (15)
  1. NUPLAZID [Suspect]
     Active Substance: PIMAVANSERIN TARTRATE
     Indication: Parkinson^s disease psychosis
     Dosage: 34 MILLIGRAM, QD
     Route: 048
     Dates: end: 202310
  2. MIDODRINE [Concomitant]
     Active Substance: MIDODRINE
  3. TRELEGY ELLIPTA [Concomitant]
     Active Substance: FLUTICASONE FUROATE\UMECLIDINIUM BROMIDE\VILANTEROL TRIFENATATE
  4. ASPIRIN [Concomitant]
     Active Substance: ASPIRIN
  5. LEVOTHYROXINE [Concomitant]
     Active Substance: LEVOTHYROXINE
  6. ZINC [Concomitant]
     Active Substance: PYRITHIONE ZINC\ZINC\ZINC CHLORIDE
  7. LINZESS [Concomitant]
     Active Substance: LINACLOTIDE
  8. VITAMIN C [Concomitant]
     Active Substance: ASCORBIC ACID
  9. ALBUTEROL [Concomitant]
     Active Substance: ALBUTEROL
  10. DOCUSATE [Concomitant]
     Active Substance: DOCUSATE
  11. PRAMIPEXOLE [Concomitant]
     Active Substance: PRAMIPEXOLE
  12. VITAMIN D NOS [Concomitant]
     Active Substance: VITAMIN D NOS
  13. LEVETIRACETAM [Concomitant]
     Active Substance: LEVETIRACETAM
  14. IRON [Concomitant]
     Active Substance: IRON
  15. CARBIDOPA\LEVODOPA [Concomitant]
     Active Substance: CARBIDOPA\LEVODOPA

REACTIONS (16)
  - Seizure [Not Recovered/Not Resolved]
  - Blood pressure decreased [Unknown]
  - Feeling abnormal [Unknown]
  - Incoherent [Not Recovered/Not Resolved]
  - Hypersomnia [Not Recovered/Not Resolved]
  - Abnormal behaviour [Not Recovered/Not Resolved]
  - Tremor [Not Recovered/Not Resolved]
  - Pain in extremity [Unknown]
  - Crying [Unknown]
  - Product dose omission issue [Unknown]
  - Muscular weakness [Unknown]
  - Confusional state [Unknown]
  - Fall [Unknown]
  - Hallucination [Not Recovered/Not Resolved]
  - Somnolence [Not Recovered/Not Resolved]
  - Gait disturbance [Not Recovered/Not Resolved]

NARRATIVE: CASE EVENT DATE: 20231113
